FAERS Safety Report 4859979-6 (Version None)
Quarter: 2005Q4

REPORT INFORMATION
  Report Type: 
  Country: None (occurrence: None)
  Receive Date: 20051215
  Receipt Date: 20051107
  Transmission Date: 20060501
  Serious: Yes (Hospitalization)
  Sender: FDA-Public Use
  Company Number: 2005141296

PATIENT
  Age: 75 Year
  Sex: Male
  Weight: 60 kg

DRUGS (4)
  1. IRINOTECAN HCL [Suspect]
     Indication: GALLBLADDER CANCER
     Dosage: 100 MG (1 IN 1 WEEK), INTRAVENOUS
     Route: 042
     Dates: start: 20050714, end: 20050721
  2. GEMZAR [Suspect]
     Indication: GALLBLADDER CANCER
     Dosage: SEE IMAGE
     Route: 042
     Dates: start: 20041206, end: 20050120
  3. GEMZAR [Suspect]
     Indication: GALLBLADDER CANCER
     Dosage: SEE IMAGE
     Route: 042
     Dates: start: 20050203, end: 20050616
  4. GEMZAR [Suspect]
     Indication: GALLBLADDER CANCER
     Dosage: SEE IMAGE
     Route: 042
     Dates: start: 20050714, end: 20050721

REACTIONS (3)
  - BLOOD LACTATE DEHYDROGENASE INCREASED [None]
  - DISEASE PROGRESSION [None]
  - INTERSTITIAL LUNG DISEASE [None]
